FAERS Safety Report 5063978-1 (Version None)
Quarter: 2006Q3

REPORT INFORMATION
  Report Type: 
  Country: None (occurrence: None)
  Receive Date: 20060703
  Receipt Date: 20051017
  Transmission Date: 20061208
  Serious: No
  Sender: FDA-Public Use
  Company Number: 2005S1010241

PATIENT
  Age: 17 Year
  Sex: Female
  Weight: 57.1532 kg

DRUGS (3)
  1. CLOZAPINE [Suspect]
     Indication: BIPOLAR DISORDER
     Dosage: 100 MG;BID;PO
     Route: 048
     Dates: start: 20050919
  2. OXCARBAZEPINE [Concomitant]
  3. SETRALINE HCL [Concomitant]

REACTIONS (1)
  - GRANULOCYTOPENIA [None]
